FAERS Safety Report 15978908 (Version 2)
Quarter: 2019Q3

REPORT INFORMATION
  Report Type: Spontaneous
  Country: FR (occurrence: FR)
  Receive Date: 20190219
  Receipt Date: 20190911
  Transmission Date: 20191004
  Serious: Yes (Hospitalization)
  Sender: FDA-Public Use
  Company Number: FR-SUN PHARMACEUTICAL INDUSTRIES LTD-2019RR-199446

PATIENT
  Age: 96 Year
  Sex: Male
  Weight: 98.3 kg

DRUGS (2)
  1. LOXAPAC [Suspect]
     Active Substance: LOXAPINE
     Indication: INSOMNIA
     Dosage: 2 MILLIGRAM, DAILY
     Route: 048
     Dates: start: 20181207
  2. MEMANTINE. [Suspect]
     Active Substance: MEMANTINE
     Indication: DEMENTIA ALZHEIMER^S TYPE
     Dosage: 10 MILLIGRAM, DAILY
     Route: 048
     Dates: start: 201706, end: 201810

REACTIONS (5)
  - Confusional state [Not Recovered/Not Resolved]
  - Depression [Not Recovered/Not Resolved]
  - Product administration interrupted [Recovered/Resolved]
  - Withdrawal syndrome [Not Recovered/Not Resolved]
  - Aggression [Not Recovered/Not Resolved]

NARRATIVE: CASE EVENT DATE: 201810
